FAERS Safety Report 7456909-8 (Version None)
Quarter: 2011Q2

REPORT INFORMATION
  Report Type: 
  Country: None (occurrence: None)
  Receive Date: 20110504
  Receipt Date: 20110426
  Transmission Date: 20111010
  Serious: Yes (Other)
  Sender: FDA-Public Use
  Company Number: DE-PAR PHARMACEUTICAL, INC-2011SCPR002934

PATIENT

DRUGS (2)
  1. DISULFIRAM [Suspect]
     Indication: PATHOLOGICAL GAMBLING
     Dosage: 200 MG, DAILY
     Route: 065
  2. DISULFIRAM [Suspect]
     Dosage: 100 MG, DAILY
     Route: 065

REACTIONS (1)
  - SEDATION [None]
